FAERS Safety Report 9251374 (Version 1)
Quarter: 2013Q1

REPORT INFORMATION
  Report Type: Spontaneous
  Country: US (occurrence: None)
  Receive Date: 20130305
  Receipt Date: 20130305
  Transmission Date: 20140127
  Serious: Yes (Disabling, Other)
  Sender: FDA-Public Use
  Company Number: 163-21880-12093407

PATIENT
  Age: 65 Year
  Sex: Male

DRUGS (15)
  1. REVLIMID [Suspect]
     Indication: PLASMA CELL MYELOMA
     Dosage: 28 IN 28 D
     Route: 048
     Dates: start: 20120515, end: 2012
  2. VELCADE (UNKNOWN) [Concomitant]
  3. DEXAMETHASONE (DEXAMETHASONE) [Concomitant]
  4. FUROSEMIDE (FUROSEMIDE) [Concomitant]
  5. LUPRON (LEUPRORELIN ACETATE) [Concomitant]
  6. ZOMETA (ZOLEDRONIC ACID) [Concomitant]
  7. TAMSULOSIN (TAMSULOSIN) [Concomitant]
  8. VALTREX (VALACICLOVIR HYDROCHLORIDE) [Concomitant]
  9. CETRIZINE (CETIRIZINE HYDROCHLORIDE) [Concomitant]
  10. KLOR-CON (POTASSIUM CHLORIDE) [Concomitant]
  11. VITAMIN B COMPLEX (B-KOMPLEX ^LECIVA^) [Concomitant]
  12. VITAMIN B12 (CYANOCOBALAMIN) [Concomitant]
  13. PROBIOTIC (BIFIDOBACTERIUM LACTIS) [Concomitant]
  14. VITAMINS [Concomitant]
  15. SLOW-MAG (MAGNESIUM CHLORIDE ANHYDROUS) [Concomitant]

REACTIONS (4)
  - Thrombosis [None]
  - White blood cell count decreased [None]
  - Neuropathy peripheral [None]
  - Full blood count decreased [None]
